FAERS Safety Report 4352612-1 (Version None)
Quarter: 2004Q2

REPORT INFORMATION
  Report Type: 
  Country: None (occurrence: None)
  Receive Date: 20040503
  Receipt Date: 20040503
  Transmission Date: 20050107
  Serious: Yes (Disabling, Other)
  Sender: FDA-Public Use
  Company Number: None

PATIENT
  Age: 50 Year
  Sex: Female
  Weight: 51.9822 kg

DRUGS (3)
  1. METHIMAZOLE [Suspect]
     Indication: HYPERTHYROIDISM
     Dosage: 7.5 MG 1/4 TABLET ORAL
     Route: 048
     Dates: start: 20040403, end: 20040428
  2. LEVOXYL [Concomitant]
  3. ATENOLOL [Concomitant]

REACTIONS (9)
  - ABNORMAL SENSATION IN EYE [None]
  - AFFECT LABILITY [None]
  - CONFUSIONAL STATE [None]
  - FATIGUE [None]
  - HEADACHE [None]
  - LETHARGY [None]
  - MUSCULAR WEAKNESS [None]
  - PHARMACEUTICAL PRODUCT COMPLAINT [None]
  - TINNITUS [None]
